FAERS Safety Report 5740720-X (Version None)
Quarter: 2008Q2

REPORT INFORMATION
  Report Type: 
  Country: None (occurrence: None)
  Receive Date: 20080516
  Receipt Date: 20080506
  Transmission Date: 20081010
  Serious: No
  Sender: FDA-Public Use
  Company Number: FR-BAXTER-2008BH001314

PATIENT
  Age: 5 Year
  Sex: Male
  Weight: 24 kg

DRUGS (6)
  1. SEVOFLURANE [Suspect]
     Indication: ANAESTHESIA
     Dosage: DOSE UNIT:UNKNOWN
     Route: 055
     Dates: start: 20080212, end: 20080212
  2. ATROPIN [Concomitant]
     Indication: ANAESTHESIA
     Route: 042
  3. MIDAZOLAM HCL [Concomitant]
     Indication: ANAESTHESIA
     Route: 042
  4. ALFENTANIL [Concomitant]
     Indication: ANAESTHESIA
     Route: 042
  5. PROPOFOL-LIPURO [Concomitant]
     Indication: ANAESTHESIA
     Route: 042
  6. PROPACETAMOL [Concomitant]
     Indication: ANAESTHESIA
     Route: 042

REACTIONS (1)
  - AGITATION [None]
